FAERS Safety Report 5476537-3 (Version None)
Quarter: 2007Q3

REPORT INFORMATION
  Report Type: 
  Country: None (occurrence: None)
  Receive Date: 20070926
  Receipt Date: 20061016
  Transmission Date: 20080115
  Serious: Yes (Other)
  Sender: FDA-Public Use
  Company Number: 2006127135

PATIENT
  Age: 38 Year
  Sex: Male
  Weight: 104.3273 kg

DRUGS (7)
  1. ZYRTEC [Suspect]
     Indication: MULTIPLE ALLERGIES
     Dosage: 10 MG (10 MG, 1 IN 1 D), ORAL
     Route: 048
     Dates: start: 20061013
  2. ATENOLOL [Concomitant]
  3. BENICAR [Concomitant]
  4. RHINOCORT [Concomitant]
  5. SINGULAIR [Concomitant]
  6. NEXIUM [Concomitant]
  7. INDOMETHACIN [Concomitant]

REACTIONS (3)
  - HYPERTENSION [None]
  - IRRITABILITY [None]
  - NERVOUSNESS [None]
